FAERS Safety Report 8809949 (Version 4)
Quarter: 2013Q1

REPORT INFORMATION
  Report Type: Spontaneous
  Country: US (occurrence: US)
  Receive Date: 20120926
  Receipt Date: 20130313
  Transmission Date: 20140127
  Serious: Yes (Hospitalization, Other)
  Sender: FDA-Public Use
  Company Number: US-009507513-1203USA00548

PATIENT
  Sex: Female

DRUGS (6)
  1. FOSAMAX [Suspect]
     Indication: OSTEOPOROSIS
     Dosage: 70 MG, QW
     Route: 048
     Dates: start: 2004, end: 200907
  2. FOSAMAX [Suspect]
     Dosage: 10 MG, QD
     Route: 048
  3. ALENDRONATE SODIUM [Suspect]
     Indication: OSTEOPOROSIS
     Dosage: 70 MG, QW
     Route: 048
     Dates: start: 20081122
  4. VITAMINS (UNSPECIFIED) [Concomitant]
     Dosage: UNK, QD
  5. VITAMIN D (UNSPECIFIED) [Concomitant]
     Dosage: UNK, QD
  6. CALCIUM (UNSPECIFIED) [Concomitant]
     Dosage: UNK, QD

REACTIONS (12)
  - Femur fracture [Unknown]
  - Femur fracture [Unknown]
  - Open reduction of fracture [Unknown]
  - Packed red blood cell transfusion [Unknown]
  - Low turnover osteopathy [Unknown]
  - Haemorrhagic anaemia [Recovering/Resolving]
  - Fall [Unknown]
  - Hypothyroidism [Unknown]
  - Sleep disorder [Unknown]
  - Coagulopathy [Recovered/Resolved]
  - Left ventricular hypertrophy [Unknown]
  - Constipation [Unknown]
